FAERS Safety Report 8332051-9 (Version None)
Quarter: 2012Q2

REPORT INFORMATION
  Report Type: 
  Country: None (occurrence: None)
  Receive Date: 20120502
  Receipt Date: 20120426
  Transmission Date: 20120825
  Serious: Yes (Hospitalization)
  Sender: FDA-Public Use
  Company Number: US-MERCK-1203USA03994

PATIENT

DRUGS (1)
  1. INVANZ [Suspect]
     Route: 042

REACTIONS (1)
  - CLOSTRIDIAL INFECTION [None]
